FAERS Safety Report 18579447 (Version 1)
Quarter: 2020Q4

REPORT INFORMATION
  Report Type: Report from Study
  Country: None (occurrence: FR)
  Receive Date: 20201204
  Receipt Date: 20201204
  Transmission Date: 20210114
  Serious: Yes (Death)
  Sender: FDA-Public Use
  Company Number: FR-COEPTIS PHARMACEUTICALS, INC.-COE-2020-000076

PATIENT

DRUGS (6)
  1. THC [Suspect]
     Active Substance: DRONABINOL
  2. CODEINE [Suspect]
     Active Substance: CODEINE
  3. BISOPROLOL [Suspect]
     Active Substance: BISOPROLOL
  4. AMLODIPINE [Suspect]
     Active Substance: AMLODIPINE BESYLATE
  5. VALPROIC ACID. [Suspect]
     Active Substance: VALPROIC ACID
  6. MORPHINE [Suspect]
     Active Substance: MORPHINE

REACTIONS (1)
  - Toxicity to various agents [Fatal]
